FAERS Safety Report 6369860-1 (Version None)
Quarter: 2009Q3

REPORT INFORMATION
  Report Type: 
  Country: None (occurrence: None)
  Receive Date: 20090923
  Receipt Date: 20071012
  Transmission Date: 20100115
  Serious: Yes (Hospitalization)
  Sender: FDA-Public Use
  Company Number: US-ASTRAZENECA-2006UW11708

PATIENT
  Age: 18974 Day
  Sex: Female

DRUGS (21)
  1. SEROQUEL [Suspect]
     Indication: PSYCHOTIC DISORDER
     Dosage: 500-600 MG
     Route: 048
     Dates: start: 20041223
  2. ZYPREXA [Suspect]
  3. MAALOX [Concomitant]
     Dates: start: 20050426
  4. HEPARIN [Concomitant]
     Dates: start: 20050426
  5. PROMETHAZINE [Concomitant]
     Dates: start: 20050426
  6. INSULIN [Concomitant]
     Dates: start: 20050426
  7. LORAZEPAM [Concomitant]
     Dates: start: 20050426
  8. GLYBURIDE [Concomitant]
     Route: 048
     Dates: start: 20050427
  9. FAMOTIDINE [Concomitant]
     Dates: start: 20050427
  10. METFORMIN HCL [Concomitant]
     Route: 048
     Dates: start: 20050428
  11. VICODIN [Concomitant]
     Dates: start: 20050428
  12. PRILOSEC [Concomitant]
     Route: 048
     Dates: start: 20060308
  13. PREMARIN [Concomitant]
     Route: 048
     Dates: start: 20060318
  14. PROVERA [Concomitant]
     Route: 048
     Dates: start: 20060318
  15. DILTIA XT [Concomitant]
     Route: 048
     Dates: start: 20060318
  16. NEURONTIN [Concomitant]
     Dosage: 1200-1800 MG
     Route: 048
     Dates: start: 20071119
  17. ULTRAM [Concomitant]
     Dosage: 200-300 MG
     Route: 048
     Dates: start: 20060308
  18. PHENAZOPYRIDINE HCL TAB [Concomitant]
     Dates: start: 20071126
  19. ENALAPRIL MALEATE [Concomitant]
     Route: 048
     Dates: start: 20060318
  20. PROZAC [Concomitant]
     Indication: DEPRESSION
     Dates: start: 20041223
  21. LITHIUM [Concomitant]
     Indication: MOOD SWINGS
     Dates: start: 20041223

REACTIONS (4)
  - DIABETES MELLITUS [None]
  - DIABETIC KETOACIDOSIS [None]
  - GLUCOSE TOLERANCE IMPAIRED [None]
  - TYPE 2 DIABETES MELLITUS [None]
